FAERS Safety Report 5237901-0 (Version None)
Quarter: 2007Q1

REPORT INFORMATION
  Report Type: 
  Country: None (occurrence: None)
  Receive Date: 20070214
  Receipt Date: 20070206
  Transmission Date: 20070707
  Serious: Yes (Hospitalization)
  Sender: FDA-Public Use
  Company Number: US-BAXTER-2007BH001305

PATIENT
  Age: 62 Year
  Sex: Male

DRUGS (10)
  1. DIANEAL [Suspect]
     Indication: RENAL FAILURE CHRONIC
     Dosage: DOSE UNIT:UNKNOWN
     Route: 033
     Dates: start: 20040601
  2. DIANEAL [Suspect]
     Indication: RENAL FAILURE CHRONIC
     Route: 033
     Dates: start: 20040601
  3. HUMALOG [Concomitant]
     Indication: DIABETES MELLITUS INSULIN-DEPENDENT
     Dosage: DOSE UNIT:UNKNOWN
     Route: 058
     Dates: start: 20040609
  4. HUMALIN [Concomitant]
     Indication: DIABETES MELLITUS INSULIN-DEPENDENT
     Route: 058
     Dates: start: 20040709
  5. NEPHROCAPS [Concomitant]
     Indication: VITAMIN SUPPLEMENTATION
     Route: 048
     Dates: start: 20030513
  6. PRILOSEC [Concomitant]
     Indication: GASTROINTESTINAL HAEMORRHAGE
     Route: 048
     Dates: start: 20041202
  7. RENAGEL [Concomitant]
     Indication: HYPERPHOSPHATAEMIA
     Dosage: DOSE UNIT:UNKNOWN
     Route: 048
     Dates: start: 20050923
  8. REPLIVA [Concomitant]
     Indication: BLOOD IRON
     Dosage: DOSE UNIT:UNKNOWN
     Route: 048
     Dates: start: 20060712
  9. TYLENOL W/ CODEINE NO. 3 [Concomitant]
     Indication: PAIN
     Dosage: DOSE UNIT:UNKNOWN
     Route: 048
     Dates: start: 20060203
  10. ZEMPLAR [Concomitant]
     Indication: VITAMIN D
     Route: 048
     Dates: start: 20060809

REACTIONS (3)
  - CARDIAC FAILURE CONGESTIVE [None]
  - MYOCARDIAL INFARCTION [None]
  - RESPIRATORY FAILURE [None]
